FAERS Safety Report 11336837 (Version 1)
Quarter: 2015Q3

REPORT INFORMATION
  Report Type: Other
  Country: GB (occurrence: GB)
  Receive Date: 20150804
  Receipt Date: 20150804
  Transmission Date: 20151125
  Serious: Yes (Other)
  Sender: FDA-Public Use
  Company Number: GB-MYLANLABS-2015M1025080

PATIENT

DRUGS (1)
  1. TERBINAFINE. [Suspect]
     Active Substance: TERBINAFINE
     Dosage: UNK
     Dates: start: 20150713

REACTIONS (2)
  - Rash erythematous [Recovering/Resolving]
  - Erythema nodosum [Recovering/Resolving]

NARRATIVE: CASE EVENT DATE: 20150713
